FAERS Safety Report 12968477 (Version 1)
Quarter: 2016Q4

REPORT INFORMATION
  Report Type: Spontaneous
  Country: US (occurrence: US)
  Receive Date: 20161123
  Receipt Date: 20161123
  Transmission Date: 20170207
  Serious: No
  Sender: FDA-Public Use
  Company Number: US-JNJFOC-20150403366

PATIENT
  Sex: Male

DRUGS (1)
  1. AXERT [Suspect]
     Active Substance: ALMOTRIPTAN MALATE
     Indication: MIGRAINE
     Dosage: ONE AT FIRST SIGN AND MAY REPEAT ONCE IN TWO HOURS.
     Route: 048

REACTIONS (1)
  - Drug dose omission [Unknown]
